FAERS Safety Report 5276985-0 (Version None)
Quarter: 2007Q1

REPORT INFORMATION
  Report Type: 
  Country: None (occurrence: None)
  Receive Date: 20070327
  Receipt Date: 20061212
  Transmission Date: 20070707
  Serious: No
  Sender: FDA-Public Use
  Company Number: US-BRISTOL-MYERS SQUIBB COMPANY-13609730

PATIENT
  Age: 79 Year
  Sex: Male
  Weight: 60 kg

DRUGS (5)
  1. ORENCIA [Suspect]
     Route: 042
     Dates: start: 20061101
  2. AVAPRO [Concomitant]
  3. METHOTREXATE [Concomitant]
  4. ASPIRIN [Concomitant]
  5. MULTI-VITAMIN [Concomitant]

REACTIONS (1)
  - DRUG INEFFECTIVE [None]
